FAERS Safety Report 6659744-3 (Version None)
Quarter: 2010Q1

REPORT INFORMATION
  Report Type: 
  Country: None (occurrence: None)
  Receive Date: 20100325
  Receipt Date: 20100312
  Transmission Date: 20100710
  Serious: Yes (Hospitalization, Disabling)
  Sender: FDA-Public Use
  Company Number: 004446

PATIENT
  Sex: Male
  Weight: 73.3 kg

DRUGS (4)
  1. LEVETIRACETAM [Suspect]
     Indication: CONVULSION
     Dosage: (1500 MG BID ORAL)
     Route: 048
     Dates: start: 20060704, end: 20100111
  2. CARBAMAZEPINE [Concomitant]
  3. KETOPROFEN [Concomitant]
  4. DICLOFENAC SODIUM [Concomitant]

REACTIONS (12)
  - CAROTID ARTERY STENOSIS [None]
  - CEREBRAL ARTERY EMBOLISM [None]
  - CEREBRAL ARTERY STENOSIS [None]
  - CEREBRAL HAEMORRHAGE [None]
  - CEREBRAL INFARCTION [None]
  - DEEP VEIN THROMBOSIS [None]
  - DYSPHAGIA [None]
  - FACIAL PALSY [None]
  - FALL [None]
  - HEMIPLEGIA [None]
  - PARADOXICAL EMBOLISM [None]
  - POSTICTAL STATE [None]
